FAERS Safety Report 6761751-7 (Version None)
Quarter: 2010Q2

REPORT INFORMATION
  Report Type: 
  Country: None (occurrence: None)
  Receive Date: 20100609
  Receipt Date: 20100420
  Transmission Date: 20101027
  Serious: Yes (Hospitalization, Other)
  Sender: FDA-Public Use
  Company Number: US-BAYER-200940154NA

PATIENT
  Age: 28 Year
  Sex: Female
  Weight: 70 kg

DRUGS (2)
  1. YASMIN [Suspect]
     Indication: ORAL CONTRACEPTION
     Dosage: 1 TABLET DAILY
     Route: 048
     Dates: start: 20040101, end: 20080101
  2. LEXAPRO [Concomitant]

REACTIONS (8)
  - ABDOMINAL PAIN [None]
  - ABDOMINAL PAIN UPPER [None]
  - CHEST PAIN [None]
  - CHOLECYSTITIS ACUTE [None]
  - CHOLELITHIASIS [None]
  - GALLBLADDER DISORDER [None]
  - PAIN [None]
  - UNEVALUABLE EVENT [None]
